FAERS Safety Report 8342313-7 (Version None)
Quarter: 2012Q2

REPORT INFORMATION
  Report Type: 
  Country: None (occurrence: None)
  Receive Date: 20120507
  Receipt Date: 20120502
  Transmission Date: 20120825
  Serious: Yes (Other)
  Sender: FDA-Public Use
  Company Number: US-BAYER-2012-043988

PATIENT
  Sex: Female

DRUGS (2)
  1. XARELTO [Interacting]
     Indication: ATRIAL FIBRILLATION
     Dosage: 15 MG, QD
     Route: 048
  2. ASPIRIN [Suspect]

REACTIONS (1)
  - BLOOD URINE PRESENT [None]
